FAERS Safety Report 5375113-0 (Version None)
Quarter: 2007Q2

REPORT INFORMATION
  Report Type: 
  Country: None (occurrence: None)
  Receive Date: 20070629
  Receipt Date: 20060424
  Transmission Date: 20071010
  Serious: Yes (Other)
  Sender: FDA-Public Use
  Company Number: US-ASTRAZENECA-2003UW00743

PATIENT
  Age: 58 Year
  Sex: Female
  Weight: 48.5 kg

DRUGS (1)
  1. NOLVADEX [Suspect]
     Indication: BREAST CANCER
     Route: 048
     Dates: start: 19990101, end: 20040101

REACTIONS (2)
  - ENDOMETRIAL HYPERTROPHY [None]
  - WEIGHT INCREASED [None]
